FAERS Safety Report 16344052 (Version 1)
Quarter: 2019Q2

REPORT INFORMATION
  Report Type: Spontaneous
  Country: CA (occurrence: CA)
  Receive Date: 20190522
  Receipt Date: 20190522
  Transmission Date: 20190711
  Serious: Yes (Other)
  Sender: FDA-Public Use
  Company Number: CA-NAPPMUNDI-CAN-2019-0010068

PATIENT
  Age: 32 Year
  Sex: Female

DRUGS (7)
  1. HYDROMORPHONE HYDROCHLORIDE. [Suspect]
     Active Substance: HYDROMORPHONE HYDROCHLORIDE
     Indication: DRUG ABUSE
     Dosage: UNK
     Route: 042
  2. FENTANYL CITRATE. [Suspect]
     Active Substance: FENTANYL CITRATE
     Indication: DRUG ABUSE
     Dosage: UNK
     Route: 065
  3. ALCOHOL. [Suspect]
     Active Substance: ALCOHOL
     Indication: PRODUCT USED FOR UNKNOWN INDICATION
     Dosage: UNK
     Route: 065
  4. DILAUDID [Suspect]
     Active Substance: HYDROMORPHONE HYDROCHLORIDE
     Indication: DRUG ABUSE
     Dosage: UNK
     Route: 042
  5. METHAMPHETAMINE [Suspect]
     Active Substance: METHAMPHETAMINE
     Indication: DRUG ABUSE
     Dosage: UNK
     Route: 042
  6. CANNABIS SATIVA [Suspect]
     Active Substance: CANNABIS SATIVA SUBSP. SATIVA FLOWERING TOP
     Indication: DRUG ABUSE
     Dosage: UNK
     Route: 065
  7. OXYCONTIN [Suspect]
     Active Substance: OXYCODONE HYDROCHLORIDE
     Indication: DRUG ABUSE
     Dosage: UNK
     Route: 065

REACTIONS (11)
  - Drug dependence [Unknown]
  - Drug withdrawal syndrome [Unknown]
  - Drug abuse [Unknown]
  - Needle track marks [Unknown]
  - Mood altered [Unknown]
  - Drug ineffective for unapproved indication [Unknown]
  - Euphoric mood [Unknown]
  - Vein collapse [Unknown]
  - Dysarthria [Unknown]
  - Muscular weakness [Unknown]
  - Feeling of relaxation [Unknown]
